FAERS Safety Report 11306078 (Version 1)
Quarter: 2015Q3

REPORT INFORMATION
  Report Type: Spontaneous
  Country: US (occurrence: US)
  Receive Date: 20150723
  Receipt Date: 20150723
  Transmission Date: 20151125
  Serious: No
  Sender: FDA-Public Use
  Company Number: US-TEVA-580799USA

PATIENT
  Age: 41 Year
  Sex: Female
  Weight: 72.64 kg

DRUGS (6)
  1. SYNTHROID [Concomitant]
     Active Substance: LEVOTHYROXINE SODIUM
     Indication: HYPOTHYROIDISM
  2. MULTIVITAMIN [Concomitant]
     Active Substance: VITAMINS
     Indication: MITOCHONDRIAL CYTOPATHY
  3. EFFEXOR [Concomitant]
     Active Substance: VENLAFAXINE HYDROCHLORIDE
     Indication: ANXIETY
  4. GABAPENTIN. [Concomitant]
     Active Substance: GABAPENTIN
     Indication: RESTLESS LEGS SYNDROME
  5. IRON [Concomitant]
     Active Substance: IRON
     Indication: ANAEMIA
  6. NUVIGIL [Suspect]
     Active Substance: ARMODAFINIL
     Indication: HYPERSOMNIA
     Route: 065

REACTIONS (4)
  - Haemoglobin decreased [Not Recovered/Not Resolved]
  - Serum ferritin decreased [Not Recovered/Not Resolved]
  - Intentional product use issue [Unknown]
  - Hypersomnia [Unknown]

NARRATIVE: CASE EVENT DATE: 201502
